FAERS Safety Report 14648401 (Version 1)
Quarter: 2018Q1

REPORT INFORMATION
  Report Type: Spontaneous
  Country: US (occurrence: US)
  Receive Date: 20180315
  Receipt Date: 20180315
  Transmission Date: 20180509
  Serious: No
  Sender: FDA-Public Use
  Company Number: None

PATIENT
  Age: 50 Year
  Sex: Female
  Weight: 60.75 kg

DRUGS (1)
  1. LEVOTHYROXINE 75 MCG TAB [Suspect]
     Active Substance: LEVOTHYROXINE
     Route: 048
     Dates: start: 20180305, end: 20180314

REACTIONS (5)
  - Tinnitus [None]
  - Dyspnoea [None]
  - Dizziness [None]
  - Product substitution issue [None]
  - Rash pruritic [None]

NARRATIVE: CASE EVENT DATE: 20180312
